FAERS Safety Report 8773476 (Version 1)
Quarter: 2012Q4

REPORT INFORMATION
  Report Type: 
  Country: AU (occurrence: AU)
  Receive Date: 20120907
  Receipt Date: 20120907
  Transmission Date: 20130627
  Serious: No
  Sender: FDA-Public Use
  Company Number: AU-BAXTER-2012BAX015803

PATIENT
  Sex: Female

DRUGS (1)
  1. KIOVIG [Suspect]
     Indication: DRUG USE FOR UNKNOWN INDICATION
     Dosage: 8TH DOSE
     Route: 042

REACTIONS (2)
  - White blood cell count increased [Unknown]
  - Malaise [Recovered/Resolved]
